FAERS Safety Report 8157607-8 (Version None)
Quarter: 2012Q1

REPORT INFORMATION
  Report Type: 
  Country: None (occurrence: None)
  Receive Date: 20120222
  Receipt Date: 20110715
  Transmission Date: 20120608
  Serious: No
  Sender: FDA-Public Use
  Company Number: US-ASTRAZENECA-2011SE42687

PATIENT
  Age: 64 Year
  Sex: Female

DRUGS (2)
  1. TENORMIN [Concomitant]
     Dates: start: 19840101
  2. ATENOLOL [Suspect]
     Route: 048

REACTIONS (1)
  - BLOOD PRESSURE INCREASED [None]
